FAERS Safety Report 5167866-1 (Version None)
Quarter: 2006Q4

REPORT INFORMATION
  Report Type: 
  Country: None (occurrence: None)
  Receive Date: 20061206
  Receipt Date: 20061206
  Transmission Date: 20070319
  Serious: Yes (Hospitalization)
  Sender: FDA-Public Use
  Company Number: None

PATIENT
  Age: 61 Year
  Sex: Male
  Weight: 73.9363 kg

DRUGS (2)
  1. AMIODARONE HCL [Suspect]
     Dosage: 400 MG  PO  TID
     Route: 048
     Dates: start: 20061020, end: 20061026
  2. CARBAMAZEPINE [Suspect]
     Dosage: 400MG  PO  TID

REACTIONS (7)
  - ABASIA [None]
  - CONFUSIONAL STATE [None]
  - DIZZINESS [None]
  - DRUG TOXICITY [None]
  - FALL [None]
  - INCOHERENT [None]
  - OVERDOSE [None]
